FAERS Safety Report 11973044 (Version 2)
Quarter: 2016Q1

REPORT INFORMATION
  Report Type: Report from Study
  Country: US (occurrence: US)
  Receive Date: 20160128
  Receipt Date: 20160229
  Transmission Date: 20160526
  Serious: Yes (Death, Other)
  Sender: FDA-Public Use
  Company Number: US-TEVA-629006USA

PATIENT
  Age: 62 Year
  Sex: Male

DRUGS (2)
  1. CLOZAPINE. [Suspect]
     Active Substance: CLOZAPINE
     Indication: SCHIZOPHRENIA
     Dosage: 100 MILLIGRAM DAILY; AT BEDTIME
     Route: 048
     Dates: end: 201404
  2. CLOZAPINE. [Suspect]
     Active Substance: CLOZAPINE
     Dosage: 50 MILLIGRAM DAILY; IN THE MORNING
     Route: 048
     Dates: end: 201404

REACTIONS (2)
  - Lung neoplasm malignant [Fatal]
  - Granulocytopenia [Unknown]

NARRATIVE: CASE EVENT DATE: 20140515
